FAERS Safety Report 13374085 (Version 1)
Quarter: 2017Q1

REPORT INFORMATION
  Report Type: Spontaneous
  Country: NL (occurrence: NL)
  Receive Date: 20170327
  Receipt Date: 20170327
  Transmission Date: 20170429
  Serious: Yes (Hospitalization)
  Sender: FDA-Public Use
  Company Number: NL-JNJFOC-20170325344

PATIENT
  Age: 81 Year
  Sex: Male
  Weight: 103 kg

DRUGS (6)
  1. XARELTO [Suspect]
     Active Substance: RIVAROXABAN
     Indication: PULMONARY EMBOLISM
     Route: 048
     Dates: start: 20161130, end: 20170309
  2. CHLORAMPHENICOL [Concomitant]
     Active Substance: CHLORAMPHENICOL
     Route: 047
  3. PARACETAMOL [Concomitant]
     Active Substance: ACETAMINOPHEN
     Route: 048
  4. NADROPARIN [Concomitant]
     Active Substance: NADROPARIN
     Route: 058
  5. FUROSEMIDE. [Concomitant]
     Active Substance: FUROSEMIDE
     Route: 048
  6. SIMVASTATINE [Concomitant]
     Active Substance: SIMVASTATIN
     Route: 048

REACTIONS (4)
  - Pruritus [Recovering/Resolving]
  - Generalised oedema [Recovering/Resolving]
  - Toxic skin eruption [Recovering/Resolving]
  - Hypotension [Recovering/Resolving]

NARRATIVE: CASE EVENT DATE: 20170306
